FAERS Safety Report 8935191 (Version 1)
Quarter: 2012Q4

REPORT INFORMATION
  Report Type: 
  Country: JP (occurrence: JP)
  Receive Date: 20121129
  Receipt Date: 20121129
  Transmission Date: 20130627
  Serious: Yes (Other)
  Sender: FDA-Public Use
  Company Number: JP-OTSUKA-JP-2012-16770

PATIENT
  Age: 70 Year
  Sex: Male

DRUGS (1)
  1. PLETAAL [Suspect]
     Indication: CEREBRAL INFARCTION
     Dosage: 100 Mg milligram(s), bid
     Route: 048

REACTIONS (3)
  - Autoimmune thrombocytopenia [Recovered/Resolved]
  - Infection [Unknown]
  - Petechiae [Recovered/Resolved]
